FAERS Safety Report 13739338 (Version 2)
Quarter: 2017Q3

REPORT INFORMATION
  Report Type: Report from Study
  Country: US (occurrence: US)
  Receive Date: 20170710
  Receipt Date: 20170809
  Transmission Date: 20171127
  Serious: Yes (Hospitalization, Other)
  Sender: FDA-Public Use
  Company Number: US-ACTELION-A-NJ2016-139836

PATIENT
  Age: 5 Month
  Sex: Male

DRUGS (11)
  1. FUROSEMIDE. [Concomitant]
     Active Substance: FUROSEMIDE
     Dosage: 6 MG, BID
  2. ALBUTEROL. [Concomitant]
     Active Substance: ALBUTEROL
     Dosage: 2 PUFF, BID
  3. BECLOMETHASONE [Concomitant]
     Active Substance: BECLOMETHASONE
     Dosage: 1 PUFF, BID
  4. OMEPRAZOLE. [Concomitant]
     Active Substance: OMEPRAZOLE
     Dosage: UNK
  5. FUROSEMIDE. [Concomitant]
     Active Substance: FUROSEMIDE
     Dosage: 4 MG, QD
  6. TRACLEER [Suspect]
     Active Substance: BOSENTAN
     Dosage: 2 MG/KG, BID
     Route: 048
     Dates: start: 20160406
  7. ZANTAC [Concomitant]
     Active Substance: RANITIDINE HYDROCHLORIDE
     Dosage: 12 MG, BID
  8. CLONIDINE. [Concomitant]
     Active Substance: CLONIDINE
  9. TRACLEER [Suspect]
     Active Substance: BOSENTAN
     Indication: PULMONARY ARTERIAL HYPERTENSION
     Dosage: 15.625 MG, BID
     Route: 048
     Dates: start: 20160406, end: 20170620
  10. SILDENAFIL. [Concomitant]
     Active Substance: SILDENAFIL
     Dosage: 4.5 MG, TID
  11. LACTULOSE. [Concomitant]
     Active Substance: LACTULOSE
     Dosage: UNK
     Route: 049

REACTIONS (5)
  - Tracheostomy [Recovered/Resolved]
  - Cardiac operation [Unknown]
  - Gastroenterostomy [Recovered/Resolved]
  - Pneumonia aspiration [Recovered/Resolved]
  - Respiratory distress [Recovered/Resolved]

NARRATIVE: CASE EVENT DATE: 20160622
